FAERS Safety Report 10065638 (Version 1)
Quarter: 2014Q2

REPORT INFORMATION
  Report Type: Spontaneous
  Country: US (occurrence: US)
  Receive Date: 20140408
  Receipt Date: 20140408
  Transmission Date: 20141212
  Serious: No
  Sender: FDA-Public Use
  Company Number: US-PFIZER INC-2014094706

PATIENT
  Age: 42 Year
  Sex: Female

DRUGS (6)
  1. XELJANZ [Suspect]
     Indication: RHEUMATOID ARTHRITIS
     Dosage: 5 MG, 2X/DAY
     Route: 048
  2. SYNTHROID [Concomitant]
     Dosage: 112 UG, UNK
  3. FLEXERIL [Concomitant]
     Dosage: 10 MG, UNK
  4. TREXIMET [Concomitant]
     Dosage: NAPROXEN SODIUM 85 MG-SUMATRIPTAN SUCCINATE 500 MG
  5. VITAMIN D [Concomitant]
     Dosage: 1000 IU, UNK
  6. BIOTIN [Concomitant]
     Dosage: UNK

REACTIONS (4)
  - Abdominal pain upper [Unknown]
  - Diarrhoea [Unknown]
  - Nausea [Unknown]
  - Abdominal discomfort [Unknown]
